FAERS Safety Report 18525410 (Version 1)
Quarter: 2020Q4

REPORT INFORMATION
  Report Type: Spontaneous
  Country: US (occurrence: US)
  Receive Date: 20201119
  Receipt Date: 20201119
  Transmission Date: 20210114
  Serious: Yes (Other)
  Sender: FDA-Public Use
  Company Number: US-BEH-2020124892

PATIENT
  Sex: Female

DRUGS (1)
  1. HIZENTRA [Suspect]
     Active Substance: HUMAN IMMUNOGLOBULIN G
     Dosage: 18 GRAM, QOW
     Route: 058
     Dates: start: 20190228

REACTIONS (5)
  - Dyspnoea [Unknown]
  - Exercise lack of [Unknown]
  - Stress [Unknown]
  - Panic attack [Unknown]
  - Headache [Unknown]
